FAERS Safety Report 23688159 (Version 1)
Quarter: 2024Q1

REPORT INFORMATION
  Report Type: Report from Study
  Country: CA (occurrence: CA)
  Receive Date: 20240329
  Receipt Date: 20240329
  Transmission Date: 20240410
  Serious: Yes (Death, Other)
  Sender: FDA-Public Use
  Company Number: CA-TAIHOP-2024-000638

PATIENT
  Age: 62 Year
  Sex: Male

DRUGS (1)
  1. LONSURF [Suspect]
     Active Substance: TIPIRACIL HYDROCHLORIDE\TRIFLURIDINE
     Indication: Colorectal cancer metastatic
     Dosage: FORM STRENGTH UNKNOWN.?CYCLE 1
     Route: 048
     Dates: start: 20240117

REACTIONS (5)
  - Death [Fatal]
  - Craniofacial fracture [Unknown]
  - Fall [Unknown]
  - Dizziness [Unknown]
  - Intentional dose omission [Unknown]

NARRATIVE: CASE EVENT DATE: 20240301
